FAERS Safety Report 20893816 (Version 1)
Quarter: 2022Q2

REPORT INFORMATION
  Report Type: Spontaneous
  Country: US (occurrence: None)
  Receive Date: 20220531
  Receipt Date: 20220531
  Transmission Date: 20220720
  Serious: Yes (Other)
  Sender: FDA-Public Use
  Company Number: US-ROCHE-3101825

PATIENT
  Sex: Male

DRUGS (1)
  1. OCREVUS [Suspect]
     Active Substance: OCRELIZUMAB
     Indication: Product used for unknown indication
     Dosage: 300MG/10ML
     Route: 042
     Dates: start: 202106, end: 202112

REACTIONS (4)
  - Flushing [Unknown]
  - Muscular weakness [Unknown]
  - Paralysis [Unknown]
  - Drug ineffective [Unknown]
